FAERS Safety Report 25486119 (Version 1)
Quarter: 2025Q2

REPORT INFORMATION
  Report Type: Spontaneous
  Country: TW (occurrence: TW)
  Receive Date: 20250626
  Receipt Date: 20250626
  Transmission Date: 20250717
  Serious: Yes (Death)
  Sender: DAIICHI
  Company Number: TW-DSJP-DS-2025-149694-TW

PATIENT
  Sex: Female

DRUGS (1)
  1. TRASTUZUMAB DERUXTECAN [Suspect]
     Active Substance: TRASTUZUMAB DERUXTECAN
     Indication: HER2 positive breast cancer
     Route: 042
     Dates: start: 20250507

REACTIONS (1)
  - Death [Fatal]
